FAERS Safety Report 15351240 (Version 3)
Quarter: 2019Q3

REPORT INFORMATION
  Report Type: Spontaneous
  Country: US (occurrence: US)
  Receive Date: 20180905
  Receipt Date: 20190822
  Transmission Date: 20191004
  Serious: No
  Sender: FDA-Public Use
  Company Number: US-PFIZER INC-2017099544

PATIENT
  Age: 49 Year
  Sex: Female
  Weight: 65.76 kg

DRUGS (19)
  1. OMEPRAZOLE. [Concomitant]
     Active Substance: OMEPRAZOLE
     Dosage: 40 MG, 1X/DAY
     Route: 048
  2. PRIMIDONE. [Concomitant]
     Active Substance: PRIMIDONE
     Indication: ARTHRITIS
     Dosage: 50 MG, UNK
     Route: 048
  3. LYRICA [Suspect]
     Active Substance: PREGABALIN
     Indication: MUSCLE SPASMS
  4. LYRICA [Suspect]
     Active Substance: PREGABALIN
     Indication: INJURY
  5. SKELAXIN [Concomitant]
     Active Substance: METAXALONE
     Indication: BACK PAIN
     Dosage: 800 MG, 4X/DAY
     Route: 048
     Dates: start: 20130328
  6. LYRICA [Suspect]
     Active Substance: PREGABALIN
     Indication: PAIN
  7. HYDROCODONE/ACETAMINOPHEN [Concomitant]
     Active Substance: ACETAMINOPHEN\HYDROCODONE
     Indication: PAIN
     Dosage: 1 DF(10-325), AS NEEDED
     Route: 048
  8. LOVASTATIN. [Concomitant]
     Active Substance: LOVASTATIN
     Indication: HYPERTENSION
     Dosage: 20 MG, 1X/DAY (BEDTIME)
     Route: 048
  9. FLUARIX QUADRIVALENT [Concomitant]
     Dosage: UNK
     Route: 030
  10. CLONAZEPAM. [Concomitant]
     Active Substance: CLONAZEPAM
     Dosage: 0.5 MG, 1X/DAY (BEDTIME)
     Route: 048
  11. BABY ASPIRIN [Concomitant]
     Active Substance: ASPIRIN
     Indication: CARDIAC DISORDER
     Dosage: UNK UNK, 1X/DAY
     Dates: start: 201610
  12. LYRICA [Suspect]
     Active Substance: PREGABALIN
     Indication: BACK INJURY
  13. AMMONIUM LACTATE. [Concomitant]
     Active Substance: AMMONIUM LACTATE
     Dosage: UNK
     Route: 061
  14. LYRICA [Suspect]
     Active Substance: PREGABALIN
     Indication: BACK PAIN
     Dosage: 150 MG, 4X/DAY
     Route: 048
     Dates: start: 2004
  15. VENTOLIN HFA [Concomitant]
     Active Substance: ALBUTEROL SULFATE
     Indication: WHEEZING
     Dosage: UNK, AS NEEDED
     Route: 055
  16. CHILDREN^S ASPIRIN [Concomitant]
     Active Substance: ASPIRIN
     Dosage: 81 MG, 1X/DAY
     Route: 048
  17. LISINOPRIL. [Concomitant]
     Active Substance: LISINOPRIL
     Dosage: 2.5 MG, 1X/DAY
     Route: 048
     Dates: start: 201610
  18. PRIMIDONE. [Concomitant]
     Active Substance: PRIMIDONE
     Dosage: 0.25 MG, 1X/DAY
  19. LYRICA [Suspect]
     Active Substance: PREGABALIN
     Indication: NEURALGIA

REACTIONS (4)
  - Intentional product misuse [Unknown]
  - Product dose omission [Unknown]
  - Off label use [Unknown]
  - Malaise [Unknown]

NARRATIVE: CASE EVENT DATE: 20180825
